FAERS Safety Report 17729461 (Version 1)
Quarter: 2020Q2

REPORT INFORMATION
  Report Type: Spontaneous
  Country: IN (occurrence: IN)
  Receive Date: 20200430
  Receipt Date: 20200430
  Transmission Date: 20200714
  Serious: Yes (Other)
  Sender: FDA-Public Use
  Company Number: NVSC2020IN115930

PATIENT
  Age: 51 Year
  Sex: Female
  Weight: 74 kg

DRUGS (2)
  1. HYDROXYCHLOROQUINE [Suspect]
     Active Substance: HYDROXYCHLOROQUINE
     Indication: MIXED CONNECTIVE TISSUE DISEASE
     Dosage: 400 MG, QD
     Route: 065
  2. PREDNISOLONE. [Concomitant]
     Active Substance: PREDNISOLONE
     Indication: MIXED CONNECTIVE TISSUE DISEASE
     Dosage: 40 MG, QD (GRADUAL TAPER TO 5 MG/DAY)
     Route: 065

REACTIONS (3)
  - Product use in unapproved indication [Unknown]
  - Tinnitus [Recovered/Resolved]
  - Deafness neurosensory [Recovered/Resolved]
